FAERS Safety Report 20010136 (Version 1)
Quarter: 2021Q4

REPORT INFORMATION
  Report Type: Spontaneous
  Country: NL (occurrence: NL)
  Receive Date: 20211028
  Receipt Date: 20211028
  Transmission Date: 20220304
  Serious: Yes (Death, Hospitalization, Other)
  Sender: FDA-Public Use
  Company Number: NL-JUBILANT CADISTA PHARMACEUTICALS-2021JUB00374

PATIENT
  Age: 52 Year
  Sex: Female

DRUGS (2)
  1. PREDNISONE [Suspect]
     Active Substance: PREDNISONE
     Indication: Rheumatoid arthritis
     Route: 065
  2. LEFLUNOMIDE [Suspect]
     Active Substance: LEFLUNOMIDE
     Indication: Rheumatoid arthritis
     Route: 065

REACTIONS (7)
  - Cellulitis gangrenous [Fatal]
  - Encephalopathy [Unknown]
  - Acute respiratory distress syndrome [Fatal]
  - Renal failure [Fatal]
  - Shock [Unknown]
  - Lymphopenia [Unknown]
  - Pulmonary alveolar haemorrhage [Unknown]
